FAERS Safety Report 7874029-5 (Version None)
Quarter: 2011Q4

REPORT INFORMATION
  Report Type: 
  Country: None (occurrence: None)
  Receive Date: 20111030
  Receipt Date: 20110513
  Transmission Date: 20120403
  Serious: No
  Sender: FDA-Public Use
  Company Number: US-AMGEN-USASP2011024879

PATIENT
  Age: 56 Year
  Sex: Male

DRUGS (9)
  1. METOPROLOL [Concomitant]
     Dosage: 25 MG, UNK
     Route: 048
  2. METHOTREXATE [Concomitant]
     Dosage: 2.5 MG, UNK
     Route: 048
  3. MULTI-VITAMINS [Concomitant]
     Dosage: UNK
     Route: 048
  4. CALCIUM CITRATE WITH VITAMIN D [Concomitant]
     Dosage: UNK
     Route: 048
  5. PLAQUENIL [Concomitant]
     Dosage: 200 MG, UNK
     Route: 048
  6. TRAMADOL HCL [Concomitant]
     Dosage: 50 MG, UNK
     Route: 048
  7. ASPIRIN [Concomitant]
     Dosage: 325 MG, UNK
     Route: 048
  8. GLUCOSAMIN CHONDROITIN             /01430901/ [Concomitant]
     Dosage: UNK
     Route: 048
  9. ENBREL [Suspect]
     Indication: PRODUCT USED FOR UNKNOWN INDICATION
     Dosage: 25 MG, 2 TIMES/WK
     Route: 058

REACTIONS (3)
  - HEADACHE [None]
  - INJECTION SITE PRURITUS [None]
  - INJECTION SITE INDURATION [None]
